FAERS Safety Report 11555139 (Version 2)
Quarter: 2016Q1

REPORT INFORMATION
  Report Type: Spontaneous
  Country: JP (occurrence: JP)
  Receive Date: 20150925
  Receipt Date: 20160208
  Transmission Date: 20160525
  Serious: Yes (Other)
  Sender: FDA-Public Use
  Company Number: JP-PFIZER INC-2015307468

PATIENT
  Sex: Male

DRUGS (10)
  1. IBUPROFEN. [Suspect]
     Active Substance: IBUPROFEN
     Dosage: UNK
     Route: 064
  2. PREDNISOLONE. [Suspect]
     Active Substance: PREDNISOLONE
     Dosage: 50 MG, DAILY
     Route: 064
  3. CEFCAPENE PIVOXIL [Suspect]
     Active Substance: CEFCAPENE PIVOXIL
     Dosage: UNK
     Route: 064
  4. PA [Suspect]
     Active Substance: ASPIRIN\CAFFEINE\PROMETHAZINE\SALICYLAMIDE
     Dosage: UNK
     Route: 064
  5. PREDNISOLONE. [Suspect]
     Active Substance: PREDNISOLONE
     Dosage: 15 MG, DAILY
     Route: 064
  6. HEPARIN SODIUM. [Suspect]
     Active Substance: HEPARIN SODIUM
     Dosage: UNK
     Route: 064
  7. PREDNISOLONE. [Suspect]
     Active Substance: PREDNISOLONE
     Dosage: 25 MG, DAILY
     Route: 064
  8. PREDNISOLONE. [Suspect]
     Active Substance: PREDNISOLONE
     Dosage: 20 MG, DAILY
     Route: 064
  9. TIPEPIDINE [Suspect]
     Active Substance: TIPEPIDINE
     Dosage: UNK
     Route: 064
  10. DEXTROMETHORPHAN HYDROBROMIDE. [Suspect]
     Active Substance: DEXTROMETHORPHAN HYDROBROMIDE
     Dosage: UNK
     Route: 064

REACTIONS (2)
  - Exposure during pregnancy [Unknown]
  - Premature baby [Unknown]
